FAERS Safety Report 25085998 (Version 1)
Quarter: 2025Q1

REPORT INFORMATION
  Report Type: Spontaneous
  Country: US (occurrence: None)
  Receive Date: 20250316
  Receipt Date: 20250316
  Transmission Date: 20250409
  Serious: Yes (Other)
  Sender: FDA-CTU
  Company Number: None

PATIENT
  Age: 13 Year
  Sex: Male
  Weight: 53.55 kg

DRUGS (7)
  1. XOFLUZA [Suspect]
     Active Substance: BALOXAVIR MARBOXIL
     Indication: Influenza
     Route: 048
     Dates: start: 20250315, end: 20250315
  2. ADDERALL XR [Concomitant]
     Active Substance: AMPHETAMINE ASPARTATE\AMPHETAMINE SULFATE\DEXTROAMPHETAMINE SACCHARATE\DEXTROAMPHETAMINE SULFATE
  3. ASMANEX HFA [Concomitant]
     Active Substance: MOMETASONE FUROATE
  4. MELATONIN [Concomitant]
     Active Substance: MELATONIN
  5. fiber supplement (Oily, fiber gummy ring) [Concomitant]
  6. one a day - teen multivitamins [Concomitant]
  7. ALBUTEROL [Concomitant]
     Active Substance: ALBUTEROL

REACTIONS (7)
  - Psychotic disorder [None]
  - Screaming [None]
  - Aggression [None]
  - Staring [None]
  - Flushing [None]
  - Hyperhidrosis [None]
  - Cold sweat [None]

NARRATIVE: CASE EVENT DATE: 20250315
